FAERS Safety Report 21052502 (Version 1)
Quarter: 2022Q3

REPORT INFORMATION
  Report Type: Spontaneous
  Country: ES (occurrence: ES)
  Receive Date: 20220707
  Receipt Date: 20220707
  Transmission Date: 20221027
  Serious: Yes (Other)
  Sender: FDA-Public Use
  Company Number: ES-GILEAD-2022-0586253

PATIENT
  Sex: Female

DRUGS (3)
  1. REYATAZ [Suspect]
     Active Substance: ATAZANAVIR SULFATE
     Indication: HIV infection
     Dates: start: 20180316, end: 20190808
  2. DESCOVY [Suspect]
     Active Substance: EMTRICITABINE\TENOFOVIR ALAFENAMIDE FUMARATE
     Indication: HIV infection
     Dosage: UNK
     Dates: start: 20180316, end: 20190808
  3. GENVOYA [Suspect]
     Active Substance: COBICISTAT\ELVITEGRAVIR\EMTRICITABINE\TENOFOVIR ALAFENAMIDE FUMARATE
     Indication: HIV infection
     Dosage: UNK
     Dates: start: 20160908, end: 20180316

REACTIONS (6)
  - Pneumonia klebsiella [Unknown]
  - Pneumocystis jirovecii pneumonia [Unknown]
  - Treatment failure [Unknown]
  - Treatment noncompliance [Recovered/Resolved]
  - Oral herpes [Unknown]
  - Oesophageal candidiasis [Unknown]

NARRATIVE: CASE EVENT DATE: 20180101
